FAERS Safety Report 9134005 (Version 1)
Quarter: 2013Q1

REPORT INFORMATION
  Report Type: Spontaneous
  Country: US (occurrence: US)
  Receive Date: 20130304
  Receipt Date: 20130304
  Transmission Date: 20140127
  Serious: No
  Sender: FDA-Public Use
  Company Number: US-009507513-1302USA012633

PATIENT
  Sex: Male

DRUGS (1)
  1. DULERA [Suspect]
     Dosage: 500MCG/50MCG, 2 PUFFS, TWICE DAILY
     Route: 055
     Dates: start: 201301

REACTIONS (3)
  - Underdose [Unknown]
  - Product quality issue [Unknown]
  - No adverse event [Unknown]
